FAERS Safety Report 7444943-3 (Version None)
Quarter: 2011Q2

REPORT INFORMATION
  Report Type: 
  Country: None (occurrence: None)
  Receive Date: 20110429
  Receipt Date: 20110418
  Transmission Date: 20111010
  Serious: Yes (Hospitalization, Other)
  Sender: FDA-Public Use
  Company Number: PHHY2011DE31741

PATIENT
  Sex: Male
  Weight: 82 kg

DRUGS (15)
  1. SYMBICORT [Suspect]
     Indication: CHRONIC OBSTRUCTIVE PULMONARY DISEASE
     Dosage: 2 DF, QD
     Dates: start: 20090914
  2. METOPROLOL [Concomitant]
     Indication: HYPERTENSION
     Dosage: 50 MG, QD
     Route: 048
     Dates: start: 20100416
  3. RAMIPRIL [Concomitant]
     Indication: HYPERTENSION
     Dosage: 10 MG, QD
     Route: 048
     Dates: start: 20100519
  4. ALISKIREN [Suspect]
     Indication: HYPERTENSION
     Dosage: 150 MG, QD
     Route: 048
     Dates: start: 20091022
  5. BETA BLOCKING AGENTS [Concomitant]
  6. ACE INHIBITOR NOS [Concomitant]
     Dosage: UNK
     Dates: start: 20100201
  7. STATINE [Concomitant]
     Dosage: UNK
     Dates: start: 20110302
  8. ASPIRIN [Concomitant]
     Indication: CORONARY ARTERY DISEASE
     Dosage: 100 MG, QD
     Route: 048
     Dates: start: 20100701
  9. ALLOPURINOL [Concomitant]
     Indication: GOUT
     Dosage: 150 MG, QD
     Route: 048
     Dates: start: 20090916
  10. VALSARTAN [Suspect]
     Dosage: UNK
     Dates: start: 20090224
  11. SIMVASTATIN [Concomitant]
     Indication: HYPERCHOLESTEROLAEMIA
     Dosage: 20 MG, QD
     Route: 048
     Dates: start: 20110413
  12. PANTOPRAZOLE [Concomitant]
     Dosage: 20 MG, QD
     Dates: start: 20110413
  13. EFFIENT [Concomitant]
     Indication: CORONARY ARTERY DISEASE
     Dosage: 10 MG, QD
     Dates: start: 20110413
  14. EXFORGE HCT [Suspect]
     Indication: HYPERTENSION
     Dosage: 320/10/25 MG
     Route: 048
     Dates: start: 20090224
  15. CALCIUM CHANNEL BLOCKERS [Concomitant]

REACTIONS (3)
  - WITHDRAWAL HYPERTENSION [None]
  - ACUTE MYOCARDIAL INFARCTION [None]
  - HEART RATE DECREASED [None]
